FAERS Safety Report 7675072-1 (Version None)
Quarter: 2011Q3

REPORT INFORMATION
  Report Type: 
  Country: None (occurrence: None)
  Receive Date: 20110810
  Receipt Date: 20110802
  Transmission Date: 20111222
  Serious: Yes (Life-Threatening, Hospitalization, Other)
  Sender: FDA-Public Use
  Company Number: US-MERCK-1108USA00347

PATIENT
  Age: 76 Year
  Sex: Male
  Weight: 107 kg

DRUGS (7)
  1. LANTUS [Concomitant]
     Route: 065
  2. COUMADIN [Concomitant]
     Route: 065
  3. DIGOXIN [Concomitant]
     Route: 065
  4. JANUVIA [Suspect]
     Indication: DIABETES MELLITUS
     Route: 048
     Dates: start: 20110705, end: 20110801
  5. LASIX [Concomitant]
     Route: 065
  6. NOVOLOG [Concomitant]
     Route: 065
  7. VYTORIN [Concomitant]
     Route: 048

REACTIONS (1)
  - BLOOD GLUCOSE INCREASED [None]
